FAERS Safety Report 9065577 (Version 2)
Quarter: 2013Q1

REPORT INFORMATION
  Report Type: Report from Study
  Country: AU (occurrence: AU)
  Receive Date: 20130131
  Receipt Date: 20130228
  Transmission Date: 20140127
  Serious: Yes (Death, Other)
  Sender: FDA-Public Use
  Company Number: AU-BRISTOL-MYERS SQUIBB COMPANY-17308966

PATIENT
  Age: 71 Year
  Sex: Male

DRUGS (3)
  1. IPILIMUMAB [Suspect]
     Indication: METASTATIC MALIGNANT MELANOMA
     Dosage: CYCLE 1, DAY 1(20APR2012)?CYCLE 3, DAY 1(01JUN2012)?NO OF COURSE:3
     Dates: start: 20120420, end: 20120601
  2. ATENOLOL [Concomitant]
     Dates: start: 1990
  3. CRESTOR [Concomitant]
     Dates: start: 2010

REACTIONS (1)
  - Chronic myeloid leukaemia [Fatal]
